FAERS Safety Report 7940487-0 (Version None)
Quarter: 2011Q4

REPORT INFORMATION
  Report Type: 
  Country: None (occurrence: None)
  Receive Date: 20111128
  Receipt Date: 20111122
  Transmission Date: 20120403
  Serious: No
  Sender: FDA-Public Use
  Company Number: US-PFIZER INC-2011269068

PATIENT
  Sex: Female

DRUGS (1)
  1. LYRICA [Suspect]
     Dosage: 50 MG, 3X/DAY
     Route: 048
     Dates: start: 20110913, end: 20110928

REACTIONS (1)
  - CONFUSIONAL STATE [None]
